FAERS Safety Report 16361704 (Version 1)
Quarter: 2019Q2

REPORT INFORMATION
  Report Type: Spontaneous
  Country: US (occurrence: US)
  Receive Date: 20190528
  Receipt Date: 20190528
  Transmission Date: 20190711
  Serious: No
  Sender: FDA-Public Use
  Company Number: US-PFIZER INC-2019226207

PATIENT

DRUGS (2)
  1. THROMBIN-JMI [Suspect]
     Active Substance: THROMBIN
     Dosage: UNK
  2. ALPHA-GALACTOSIDASE [Suspect]
     Active Substance: AGALSIDASE BETA
     Dosage: UNK

REACTIONS (1)
  - Allergic reaction to excipient [Unknown]
